FAERS Safety Report 6056326-1 (Version None)
Quarter: 2009Q1

REPORT INFORMATION
  Report Type: 
  Country: None (occurrence: None)
  Receive Date: 20090129
  Receipt Date: 20090119
  Transmission Date: 20090719
  Serious: Yes (Other)
  Sender: FDA-Public Use
  Company Number: US-ROCHE-581665

PATIENT
  Sex: Male
  Weight: 88.5 kg

DRUGS (8)
  1. ACCUTANE [Suspect]
     Indication: ACNE
     Route: 048
     Dates: start: 20010901, end: 20011001
  2. ACCUTANE [Suspect]
     Dosage: FREQUENCY INCREASED.
     Route: 048
     Dates: start: 20011003, end: 20011101
  3. ACCUTANE [Suspect]
     Dosage: ON 28 DEC 2001, ISOTRETINOING WAS CONTINUED.
     Route: 048
     Dates: start: 20011201
  4. ACCUTANE [Suspect]
     Route: 048
     Dates: start: 20020201, end: 20020501
  5. SOTRET [Suspect]
     Indication: ACNE
     Route: 048
     Dates: start: 20070801, end: 20070901
  6. SOTRET [Suspect]
     Route: 048
     Dates: start: 20071101, end: 20080301
  7. CLARAVIS [Suspect]
     Indication: ACNE
     Route: 048
     Dates: start: 20030701, end: 20030731
  8. AMNESTEEM [Suspect]
     Indication: ACNE
     Route: 048
     Dates: start: 20030801, end: 20040901

REACTIONS (6)
  - ANXIETY [None]
  - CROHN'S DISEASE [None]
  - DEPRESSION [None]
  - ILL-DEFINED DISORDER [None]
  - INFLAMMATORY BOWEL DISEASE [None]
  - INTESTINAL OBSTRUCTION [None]
